FAERS Safety Report 10374307 (Version 2)
Quarter: 2014Q3

REPORT INFORMATION
  Report Type: Spontaneous
  Country: US (occurrence: US)
  Receive Date: 20140811
  Receipt Date: 20140821
  Transmission Date: 20150326
  Serious: No
  Sender: FDA-Public Use
  Company Number: US-BIOGENIDEC-2014BI074854

PATIENT
  Sex: Female

DRUGS (3)
  1. TECFIDERA [Suspect]
     Active Substance: DIMETHYL FUMARATE
     Indication: RELAPSING-REMITTING MULTIPLE SCLEROSIS
     Route: 048
  2. TECFIDERA [Suspect]
     Active Substance: DIMETHYL FUMARATE
     Indication: RELAPSING-REMITTING MULTIPLE SCLEROSIS
     Route: 048
     Dates: start: 20130906
  3. TECFIDERA [Suspect]
     Active Substance: DIMETHYL FUMARATE
     Indication: RELAPSING-REMITTING MULTIPLE SCLEROSIS

REACTIONS (9)
  - Pruritus [Not Recovered/Not Resolved]
  - Feeling hot [Not Recovered/Not Resolved]
  - Ear pain [Not Recovered/Not Resolved]
  - Flushing [Not Recovered/Not Resolved]
  - General symptom [Not Recovered/Not Resolved]
  - Erythema [Not Recovered/Not Resolved]
  - Ear discomfort [Not Recovered/Not Resolved]
  - Dry mouth [Not Recovered/Not Resolved]
  - Drug intolerance [Not Recovered/Not Resolved]
